FAERS Safety Report 9733718 (Version 1)
Quarter: 2013Q4

REPORT INFORMATION
  Report Type: Spontaneous
  Country: US (occurrence: US)
  Receive Date: 20131205
  Receipt Date: 20131205
  Transmission Date: 20140711
  Serious: Yes (Other)
  Sender: FDA-Public Use
  Company Number: US-RB-061239-13

PATIENT
  Sex: Female

DRUGS (2)
  1. SUBOXONE UNSPECIFIED [Suspect]
     Indication: PRODUCT USED FOR UNKNOWN INDICATION
     Dosage: UNKNOWN DOSAGE DETAILS; ON SUBOXONE FOR OVER 8 YEARS
     Route: 065
  2. MUCINEX [Suspect]
     Indication: NASOPHARYNGITIS
     Dosage: UNKNOWN DOSAGE DETAILS
     Route: 065

REACTIONS (7)
  - Drug dependence [Unknown]
  - Arthritis [Unknown]
  - Headache [Unknown]
  - Emotional poverty [Unknown]
  - Nasopharyngitis [Recovered/Resolved]
  - Dyspnoea [Unknown]
  - Lung disorder [Unknown]
